FAERS Safety Report 8826732 (Version 1)
Quarter: 2012Q4

REPORT INFORMATION
  Report Type: 
  Country: US (occurrence: US)
  Receive Date: 20121005
  Receipt Date: 20121005
  Transmission Date: 20130627
  Serious: Yes (Hospitalization)
  Sender: FDA-Public Use
  Company Number: US-GLAXOSMITHKLINE-A0995635A

PATIENT
  Age: 54 Year
  Sex: Female

DRUGS (2)
  1. AVANDIA [Suspect]
     Indication: TYPE 2 DIABETES MELLITUS
     Route: 048
     Dates: start: 1999, end: 2003
  2. NO CONCURRENT MEDICATION [Concomitant]

REACTIONS (6)
  - Myocardial infarction [Recovering/Resolving]
  - Cardiac failure congestive [Recovering/Resolving]
  - Coronary artery bypass [Unknown]
  - Cardiac pacemaker insertion [Unknown]
  - Cardiac disorder [Recovering/Resolving]
  - Arrhythmia [Recovering/Resolving]
